FAERS Safety Report 16962232 (Version 1)
Quarter: 2019Q4

REPORT INFORMATION
  Report Type: Spontaneous
  Country: FR (occurrence: FR)
  Receive Date: 20191025
  Receipt Date: 20191025
  Transmission Date: 20200122
  Serious: Yes (Hospitalization, Other)
  Sender: FDA-Public Use
  Company Number: FR-CASPER PHARMA LLC-2019CAS000537

PATIENT
  Age: 75 Year
  Sex: Male

DRUGS (1)
  1. NEOMYCIN, POLYMYXIN, BACITRACIN, HC [Suspect]
     Active Substance: BACITRACIN ZINC\HYDROCORTISONE\NEOMYCIN SULFATE\POLYMYXIN B SULFATE
     Indication: URINARY TRACT INFECTION
     Dosage: 250 MG OF A 10% SOLUTION OF POLYMYXIN B SULPHATE
     Route: 043

REACTIONS (2)
  - Coma [Recovering/Resolving]
  - Seizure [Recovering/Resolving]
